FAERS Safety Report 6527781-5 (Version None)
Quarter: 2010Q1

REPORT INFORMATION
  Report Type: 
  Country: None (occurrence: None)
  Receive Date: 20100106
  Receipt Date: 20091226
  Transmission Date: 20100710
  Serious: Yes (Hospitalization)
  Sender: FDA-Public Use
  Company Number: US-JNJFOC-20091104720

PATIENT
  Sex: Male
  Weight: 108.86 kg

DRUGS (4)
  1. REMICADE [Suspect]
     Indication: CROHN'S DISEASE
     Route: 042
     Dates: start: 20010101, end: 20020101
  2. PREDNISONE [Concomitant]
     Indication: CROHN'S DISEASE
     Route: 048
  3. VERAPAMIL [Concomitant]
     Indication: HYPERTENSION
  4. SULFASALAZINE [Concomitant]
     Indication: CROHN'S DISEASE

REACTIONS (4)
  - ANAEMIA [None]
  - DRUG INEFFECTIVE [None]
  - HOSPITALISATION [None]
  - LARGE GRANULAR LYMPHOCYTOSIS [None]
